FAERS Safety Report 9941864 (Version 1)
Quarter: 2014Q1

REPORT INFORMATION
  Report Type: Report from Study
  Country: US (occurrence: US)
  Receive Date: 20140303
  Receipt Date: 20140303
  Transmission Date: 20141002
  Serious: No
  Sender: FDA-Public Use
  Company Number: US-ABBVIE-13P-163-1040338-00

PATIENT
  Age: 52 Year
  Sex: Male

DRUGS (11)
  1. HUMIRA [Suspect]
     Indication: COLITIS ULCERATIVE
     Dates: start: 20121221
  2. PREDNISONE [Concomitant]
     Indication: MYASTHENIA GRAVIS
  3. ALFUZOSIN [Concomitant]
     Indication: BENIGN PROSTATIC HYPERPLASIA
  4. PROVASTATIN [Concomitant]
     Indication: BLOOD CHOLESTEROL INCREASED
  5. COLAZAAL [Concomitant]
     Indication: COLITIS ULCERATIVE
     Dosage: 750 MG X 3 CAPSULES THREE TIMES DAILY
  6. MULTIVITAMIN [Concomitant]
     Indication: PRODUCT USED FOR UNKNOWN INDICATION
  7. ACTONEL [Concomitant]
     Indication: PROPHYLAXIS
     Dosage: EVERY MONDAY
  8. VITAMIN D3 [Concomitant]
     Indication: PROPHYLAXIS
     Dosage: 2000 IU DAILY
  9. TUMS [Concomitant]
     Indication: PROPHYLAXIS
     Dosage: 3 TABS DAILY
  10. SAW PALMETTO [Concomitant]
     Indication: PRODUCT USED FOR UNKNOWN INDICATION
     Dosage: DAILY
  11. SUPER ANTI-OXIDANT [Concomitant]
     Indication: PRODUCT USED FOR UNKNOWN INDICATION
     Dosage: 1 TAB IN THE MORNING

REACTIONS (1)
  - Haematochezia [Not Recovered/Not Resolved]
